FAERS Safety Report 18663686 (Version 1)
Quarter: 2020Q4

REPORT INFORMATION
  Report Type: Report from Study
  Country: ES (occurrence: ES)
  Receive Date: 20201225
  Receipt Date: 20201225
  Transmission Date: 20210114
  Serious: Yes (Hospitalization)
  Sender: FDA-Public Use
  Company Number: ES-ROCHE-2733407

PATIENT
  Age: 81 Year
  Sex: Male

DRUGS (45)
  1. ACP-196 [Suspect]
     Active Substance: ACALABRUTINIB
     Route: 048
     Dates: start: 20180816, end: 20180828
  2. ACP-196 [Suspect]
     Active Substance: ACALABRUTINIB
     Route: 048
     Dates: start: 20180927, end: 20181024
  3. ACP-196 [Suspect]
     Active Substance: ACALABRUTINIB
     Route: 048
     Dates: start: 20181122, end: 20181219
  4. DEXCHLORPHENIRAMINE [Concomitant]
     Active Substance: DEXCHLORPHENIRAMINE
     Dates: start: 2016, end: 2016
  5. DEXCHLORPHENIRAMINE [Concomitant]
     Active Substance: DEXCHLORPHENIRAMINE
     Dates: start: 2016, end: 2016
  6. PARACETAMOL [Concomitant]
     Active Substance: ACETAMINOPHEN
     Dates: start: 2016, end: 2016
  7. DIGOXIN. [Concomitant]
     Active Substance: DIGOXIN
     Indication: ATRIAL FIBRILLATION
     Dates: start: 2011
  8. METHYLPREDNISOLONE. [Concomitant]
     Active Substance: METHYLPREDNISOLONE
     Indication: PREMEDICATION
     Dates: start: 2016, end: 2016
  9. METHYLPREDNISOLONE. [Concomitant]
     Active Substance: METHYLPREDNISOLONE
     Dates: start: 2016, end: 2016
  10. METHYLPREDNISOLONE. [Concomitant]
     Active Substance: METHYLPREDNISOLONE
     Dates: start: 2016, end: 2016
  11. METHYLPREDNISOLONE. [Concomitant]
     Active Substance: METHYLPREDNISOLONE
     Dates: start: 2016, end: 2016
  12. ACP-196 [Suspect]
     Active Substance: ACALABRUTINIB
     Route: 048
     Dates: start: 20181025, end: 20181121
  13. ACP-196 [Suspect]
     Active Substance: ACALABRUTINIB
     Route: 048
     Dates: start: 20190314, end: 20190606
  14. ACP-196 [Suspect]
     Active Substance: ACALABRUTINIB
     Route: 048
     Dates: start: 20200213, end: 20200506
  15. DEXCHLORPHENIRAMINE [Concomitant]
     Active Substance: DEXCHLORPHENIRAMINE
     Indication: PREMEDICATION
     Dates: start: 2016, end: 2016
  16. DEXCHLORPHENIRAMINE [Concomitant]
     Active Substance: DEXCHLORPHENIRAMINE
     Dates: start: 2016, end: 2016
  17. PARACETAMOL [Concomitant]
     Active Substance: ACETAMINOPHEN
     Dates: start: 2016, end: 2016
  18. FAMOTIDINE. [Concomitant]
     Active Substance: FAMOTIDINE
     Dates: start: 2019
  19. ACP-196 [Suspect]
     Active Substance: ACALABRUTINIB
     Route: 048
     Dates: start: 20190124, end: 20190313
  20. ACP-196 [Suspect]
     Active Substance: ACALABRUTINIB
     Route: 048
     Dates: start: 20190607, end: 20190828
  21. ACP-196 [Suspect]
     Active Substance: ACALABRUTINIB
     Route: 048
     Dates: start: 20200507, end: 20200729
  22. CHLORAMBUCIL [Suspect]
     Active Substance: CHLORAMBUCIL
     Route: 048
     Dates: start: 20161117, end: 20161117
  23. PARACETAMOL [Concomitant]
     Active Substance: ACETAMINOPHEN
     Indication: PREMEDICATION
     Dates: start: 2016, end: 2016
  24. METHYLPREDNISOLONE. [Concomitant]
     Active Substance: METHYLPREDNISOLONE
     Dates: start: 2016, end: 2016
  25. OBINUTUZUMAB. [Suspect]
     Active Substance: OBINUTUZUMAB
     Dosage: START TIME: 14:43 STOP TIE: 18:11
     Route: 042
     Dates: start: 20161103, end: 20161103
  26. ACP-196 [Suspect]
     Active Substance: ACALABRUTINIB
     Indication: CHRONIC LYMPHOCYTIC LEUKAEMIA
     Route: 048
     Dates: start: 20180705, end: 20180718
  27. ACP-196 [Suspect]
     Active Substance: ACALABRUTINIB
     Route: 048
     Dates: start: 20200730, end: 20201021
  28. ACP-196 [Suspect]
     Active Substance: ACALABRUTINIB
     Dosage: ACALABRUTINIB TREATMENT WAS REINTRODUCED ON 18/DEC/2020.
     Route: 048
     Dates: start: 20201022, end: 20201211
  29. PARACETAMOL [Concomitant]
     Active Substance: ACETAMINOPHEN
     Dates: start: 2016, end: 2016
  30. DABIGATRAN [Concomitant]
     Active Substance: DABIGATRAN
     Indication: ATRIAL FIBRILLATION
     Dates: start: 2014, end: 2020
  31. ACP-196 [Suspect]
     Active Substance: ACALABRUTINIB
     Route: 048
     Dates: start: 20180829, end: 20180926
  32. ACP-196 [Suspect]
     Active Substance: ACALABRUTINIB
     Route: 048
     Dates: start: 20181220, end: 20190121
  33. ACP-196 [Suspect]
     Active Substance: ACALABRUTINIB
     Route: 048
     Dates: start: 20191121, end: 20200212
  34. CHLORAMBUCIL [Suspect]
     Active Substance: CHLORAMBUCIL
     Indication: CHRONIC LYMPHOCYTIC LEUKAEMIA
     Dosage: 21 TABLETS TAKEN TOTAL? DAYS 1 AND 15 OF CYCLES 1 THROUGH 6.
     Route: 048
     Dates: start: 20160616
  35. DEXCHLORPHENIRAMINE [Concomitant]
     Active Substance: DEXCHLORPHENIRAMINE
     Dates: start: 2016, end: 2016
  36. PARACETAMOL [Concomitant]
     Active Substance: ACETAMINOPHEN
     Indication: ASTHENIA
     Dates: start: 2016, end: 2016
  37. PARACETAMOL [Concomitant]
     Active Substance: ACETAMINOPHEN
     Dates: start: 2018
  38. OBINUTUZUMAB. [Suspect]
     Active Substance: OBINUTUZUMAB
     Indication: CHRONIC LYMPHOCYTIC LEUKAEMIA
     Dosage: INFUSION START TIME: 11:57 STOP TIME: 17:35
     Route: 042
     Dates: start: 20160616, end: 20160616
  39. ACP-196 [Suspect]
     Active Substance: ACALABRUTINIB
     Route: 048
     Dates: start: 20180802, end: 20180815
  40. ACP-196 [Suspect]
     Active Substance: ACALABRUTINIB
     Route: 048
     Dates: start: 20190829, end: 20191120
  41. PARACETAMOL [Concomitant]
     Active Substance: ACETAMINOPHEN
     Dates: start: 2016, end: 2016
  42. ENOXAPARIN [Concomitant]
     Active Substance: ENOXAPARIN
     Dates: start: 2020
  43. ACP-196 [Suspect]
     Active Substance: ACALABRUTINIB
     Route: 048
     Dates: start: 20180719, end: 20180801
  44. DEXCHLORPHENIRAMINE [Concomitant]
     Active Substance: DEXCHLORPHENIRAMINE
     Dates: start: 2016, end: 2016
  45. PARACETAMOL [Concomitant]
     Active Substance: ACETAMINOPHEN
     Dates: start: 2016, end: 2016

REACTIONS (1)
  - Gastrointestinal haemorrhage [Not Recovered/Not Resolved]

NARRATIVE: CASE EVENT DATE: 20201210
